FAERS Safety Report 19230684 (Version 1)
Quarter: 2021Q2

REPORT INFORMATION
  Report Type: Spontaneous
  Country: US (occurrence: US)
  Receive Date: 20210507
  Receipt Date: 20210507
  Transmission Date: 20210717
  Serious: No
  Sender: FDA-Public Use
  Company Number: None

PATIENT
  Age: 70 Year
  Sex: Male
  Weight: 67.5 kg

DRUGS (1)
  1. INLYTA [Suspect]
     Active Substance: AXITINIB
     Indication: RENAL CANCER
     Route: 048
     Dates: start: 20210101

REACTIONS (6)
  - Stomatitis [None]
  - Epigastric discomfort [None]
  - Ageusia [None]
  - Faeces discoloured [None]
  - Oral mucosal exfoliation [None]
  - Weight decreased [None]

NARRATIVE: CASE EVENT DATE: 20210130
